FAERS Safety Report 4475505-8 (Version None)
Quarter: 2004Q4

REPORT INFORMATION
  Report Type: 
  Country: None (occurrence: None)
  Receive Date: 20041015
  Receipt Date: 20020905
  Transmission Date: 20050328
  Serious: Yes (Hospitalization, Disabling)
  Sender: FDA-Public Use
  Company Number: US-MERCK-0209USA00469

PATIENT
  Age: 68 Year
  Sex: Male
  Weight: 71 kg

DRUGS (20)
  1. REOPRO [Concomitant]
     Route: 065
     Dates: end: 20010201
  2. TYLENOL [Concomitant]
     Indication: PAIN
     Route: 065
     Dates: end: 20010201
  3. CORDARONE [Concomitant]
     Route: 065
     Dates: end: 20010201
  4. ASPIRIN [Concomitant]
     Indication: PROPHYLAXIS
     Route: 048
     Dates: start: 20010201
  5. ATENOLOL [Concomitant]
     Route: 065
     Dates: end: 20010201
  6. BUSPAR [Concomitant]
     Route: 065
     Dates: end: 20010201
  7. CLAFORAN [Concomitant]
     Route: 065
     Dates: end: 20010201
  8. CELEXA [Concomitant]
     Route: 065
     Dates: end: 20010201
  9. DOPAMINE HYDROCHLORIDE [Concomitant]
     Route: 065
     Dates: end: 20010201
  10. VASOTEC [Concomitant]
     Route: 065
     Dates: end: 20020701
  11. PEPCID [Concomitant]
     Route: 065
     Dates: end: 20010201
  12. PROZAC [Concomitant]
     Indication: DEPRESSION
     Route: 065
     Dates: end: 20010201
  13. PROZAC [Concomitant]
     Indication: GENERALISED ANXIETY DISORDER
     Route: 065
     Dates: end: 20010201
  14. DALMANE [Concomitant]
     Route: 065
     Dates: start: 20000601
  15. NEURONTIN [Concomitant]
     Route: 065
     Dates: end: 20010201
  16. ATROVENT [Concomitant]
     Route: 065
     Dates: end: 20010201
  17. MAGNESIUM SULFATE [Concomitant]
     Route: 065
     Dates: end: 20010201
  18. VIOXX [Suspect]
     Indication: BACK PAIN
     Route: 048
     Dates: start: 20001001, end: 20010701
  19. VIOXX [Suspect]
     Indication: PAIN IN EXTREMITY
     Route: 048
     Dates: start: 20001001, end: 20010701
  20. RESTORIL [Concomitant]
     Route: 065
     Dates: end: 20010201

REACTIONS (16)
  - ACUTE MYOCARDIAL INFARCTION [None]
  - ATHEROSCLEROSIS [None]
  - BLOOD CHOLESTEROL INCREASED [None]
  - CARDIAC FAILURE CONGESTIVE [None]
  - CARDIO-RESPIRATORY ARREST [None]
  - CARDIOGENIC SHOCK [None]
  - CHEST PAIN [None]
  - CONVULSION [None]
  - HAEMATURIA [None]
  - HYPERTENSION [None]
  - LUNG INFILTRATION [None]
  - MYALGIA [None]
  - ORTHOSTATIC HYPOTENSION [None]
  - PAPILLOMA [None]
  - VENTRICULAR FIBRILLATION [None]
  - VENTRICULAR TACHYCARDIA [None]
